FAERS Safety Report 5458079-4 (Version None)
Quarter: 2007Q3

REPORT INFORMATION
  Report Type: 
  Country: None (occurrence: None)
  Receive Date: 20070919
  Receipt Date: 20070912
  Transmission Date: 20080115
  Serious: Yes (Other)
  Sender: FDA-Public Use
  Company Number: PHEH2007US12299

PATIENT
  Sex: Male

DRUGS (2)
  1. LOPRESSOR [Concomitant]
  2. EXJADE [Suspect]
     Indication: IRON OVERLOAD
     Dosage: 30 MG/KG, QD
     Route: 048
     Dates: start: 20060601, end: 20070731

REACTIONS (1)
  - WEIGHT DECREASED [None]
